FAERS Safety Report 17129149 (Version 1)
Quarter: 2019Q4

REPORT INFORMATION
  Report Type: Spontaneous
  Country: US (occurrence: US)
  Receive Date: 20191208
  Receipt Date: 20191208
  Transmission Date: 20200122
  Serious: Yes (Other)
  Sender: FDA-Public Use
  Company Number: None

PATIENT
  Age: 52 Year
  Sex: Female
  Weight: 52.2 kg

DRUGS (4)
  1. PANTOPRAZOLE 40MG DAILY [Concomitant]
  2. ESTRADIOL PATCH 0.0252X WEEK [Concomitant]
  3. PROGESTERONE 100 MG DAILY [Concomitant]
  4. INJECTAFER [Suspect]
     Active Substance: FERRIC CARBOXYMALTOSE
     Indication: SERUM FERRITIN DECREASED
     Route: 042
     Dates: start: 20191014, end: 20191111

REACTIONS (3)
  - Sleep disorder [None]
  - Poor quality sleep [None]
  - Hypophosphataemia [None]

NARRATIVE: CASE EVENT DATE: 20191120
